FAERS Safety Report 21883925 (Version 2)
Quarter: 2023Q1

REPORT INFORMATION
  Report Type: Spontaneous
  Country: CZ (occurrence: CZ)
  Receive Date: 20230119
  Receipt Date: 20230130
  Transmission Date: 20230417
  Serious: Yes (Hospitalization)
  Sender: FDA-Public Use
  Company Number: CZ-Accord-296556

PATIENT
  Age: 69 Year
  Sex: Male
  Weight: 79 kg

DRUGS (23)
  1. GEMCITABINE [Suspect]
     Active Substance: GEMCITABINE
     Indication: Diffuse large B-cell lymphoma stage I
     Dosage: 1Q2W
     Route: 042
     Dates: start: 20221122, end: 20221122
  2. OXALIPLATIN [Suspect]
     Active Substance: OXALIPLATIN
     Indication: Diffuse large B-cell lymphoma stage I
     Dosage: 1Q2W
     Route: 042
     Dates: start: 20221122, end: 20221213
  3. EPCORITAMAB [Suspect]
     Active Substance: EPCORITAMAB
     Indication: Diffuse large B-cell lymphoma stage I
     Dosage: PRIMING DOSE, SINGLE
     Route: 058
     Dates: start: 20221122, end: 20221122
  4. BISULEPIN [Concomitant]
     Active Substance: BISULEPIN
     Indication: Premedication
     Route: 042
     Dates: start: 20221213, end: 20221213
  5. ACETAMINOPHEN [Concomitant]
     Active Substance: ACETAMINOPHEN
     Indication: Premedication
     Route: 048
     Dates: start: 20221213, end: 20221213
  6. PREDNISONE [Concomitant]
     Active Substance: PREDNISONE
     Indication: Prophylaxis
     Route: 048
     Dates: start: 20221122, end: 20221125
  7. ALLOPURINOL [Concomitant]
     Active Substance: ALLOPURINOL
     Dates: start: 2021, end: 20221207
  8. BISOPROLOL FUMARATE [Concomitant]
     Active Substance: BISOPROLOL FUMARATE
     Dates: start: 2020
  9. FENTANYL [Concomitant]
     Active Substance: FENTANYL
     Dates: start: 2021
  10. POTASSIUM CHLORIDE [Concomitant]
     Active Substance: POTASSIUM CHLORIDE
     Dates: start: 2021
  11. LACTULOSE [Concomitant]
     Active Substance: LACTULOSE
  12. MAGNESIUM LACTATE [Concomitant]
     Active Substance: MAGNESIUM LACTATE
  13. PROPAFENONE [Concomitant]
     Active Substance: PROPAFENONE
     Dates: start: 201612
  14. TRAZODONE HYDROCHLORIDE [Concomitant]
     Active Substance: TRAZODONE HYDROCHLORIDE
     Dates: start: 2022
  15. FILGRASTIM [Concomitant]
     Active Substance: FILGRASTIM
     Dates: start: 20221205, end: 20221207
  16. EPCORITAMAB [Suspect]
     Active Substance: EPCORITAMAB
     Indication: Diffuse large B-cell lymphoma stage I
     Dosage: RE PRIMING DOSE, SINGLE
     Route: 058
     Dates: start: 20221220, end: 20221220
  17. BISULEPIN [Concomitant]
     Active Substance: BISULEPIN
     Indication: Premedication
     Route: 042
     Dates: start: 20221220, end: 20221220
  18. ACETAMINOPHEN [Concomitant]
     Active Substance: ACETAMINOPHEN
     Indication: Premedication
     Route: 048
     Dates: start: 20221220, end: 20221220
  19. PREDNISONE [Concomitant]
     Active Substance: PREDNISONE
     Indication: Prophylaxis
     Route: 048
     Dates: start: 20221220, end: 20221223
  20. GEMCITABINE [Suspect]
     Active Substance: GEMCITABINE
     Indication: Diffuse large B-cell lymphoma stage I
     Dosage: 1Q2W
     Route: 042
     Dates: start: 20221213, end: 20221213
  21. EPCORITAMAB [Suspect]
     Active Substance: EPCORITAMAB
     Indication: Diffuse large B-cell lymphoma stage I
     Dosage: INTERMEDIATE DOSE, SINGLE
     Route: 058
     Dates: start: 20221129, end: 20221129
  22. EPCORITAMAB [Suspect]
     Active Substance: EPCORITAMAB
     Indication: Diffuse large B-cell lymphoma stage I
     Dosage: RE-PRIMING DOSE, SINGLE
     Route: 058
     Dates: start: 20221213, end: 20221213
  23. PREDNISONE [Concomitant]
     Active Substance: PREDNISONE
     Indication: Prophylaxis
     Route: 048
     Dates: start: 20221213, end: 20221216

REACTIONS (1)
  - Cytokine release syndrome [Recovered/Resolved]

NARRATIVE: CASE EVENT DATE: 20221228
